FAERS Safety Report 25807784 (Version 2)
Quarter: 2025Q3

REPORT INFORMATION
  Report Type: Report from Study
  Country: US (occurrence: US)
  Receive Date: 20250916
  Receipt Date: 20250922
  Transmission Date: 20251020
  Serious: Yes (Hospitalization)
  Sender: MERCK SHARP & DOHME LLC
  Company Number: US-009507513-2307317

PATIENT
  Sex: Female

DRUGS (2)
  1. KEYTRUDA [Suspect]
     Active Substance: PEMBROLIZUMAB
     Dosage: INFUSE 200MG VIA IVPB OVER 30 MINUTES EVERY 21 DAYS
     Route: 042
     Dates: start: 20250612
  2. KEYTRUDA [Suspect]
     Active Substance: PEMBROLIZUMAB
     Dosage: 200MG VIA INTRAVENOUS PIGGYBACK (IVPB) OVER 30 MINUTES EVERY 21 DAYS
     Route: 042

REACTIONS (2)
  - Lactic acidosis [Unknown]
  - Pneumonia [Unknown]

NARRATIVE: CASE EVENT DATE: 20250101
